FAERS Safety Report 22277105 (Version 2)
Quarter: 2025Q4

REPORT INFORMATION
  Report Type: Spontaneous
  Country: US (occurrence: US)
  Receive Date: 20230503
  Receipt Date: 20251119
  Transmission Date: 20260118
  Serious: Yes (Other)
  Sender: QILU PHARMACEUTICAL (HAINAN) CO., LTD.
  Company Number: US-QILU PHARMACEUTICAL (HAINAN) CO.  LTD.-QLH-000072-2023

PATIENT
  Age: 41 Year
  Sex: Female

DRUGS (2)
  1. ONDANSETRON [Suspect]
     Active Substance: ONDANSETRON
     Indication: Abdominal tenderness
     Dosage: 4 MG
     Route: 042
  2. KETOROLAC [Concomitant]
     Active Substance: KETOROLAC TROMETHAMINE
     Indication: Abdominal tenderness
     Dosage: 30 MG
     Route: 042

REACTIONS (4)
  - Cardiac arrest [Recovered/Resolved]
  - Electrocardiogram QT prolonged [Recovered/Resolved]
  - Torsade de pointes [Recovered/Resolved]
  - Off label use [Recovered/Resolved]
